FAERS Safety Report 4876099-5 (Version None)
Quarter: 2006Q1

REPORT INFORMATION
  Report Type: 
  Country: None (occurrence: None)
  Receive Date: 20060106
  Receipt Date: 20060106
  Transmission Date: 20060701
  Serious: Yes (Death)
  Sender: FDA-Public Use
  Company Number: None

PATIENT
  Age: 35 Year
  Sex: Male
  Weight: 87.0906 kg

DRUGS (2)
  1. FENTANYL [Suspect]
     Indication: NERVE INJURY
     Dosage: 1 PATCH EVERY 48 HRS TRANSDERMAL
     Route: 062
     Dates: start: 20051212, end: 20051224
  2. FENTANYL [Suspect]
     Indication: NEURALGIA
     Dosage: 1 PATCH EVERY 48 HRS TRANSDERMAL
     Route: 062
     Dates: start: 20051212, end: 20051224

REACTIONS (6)
  - ABNORMAL BEHAVIOUR [None]
  - ANGER [None]
  - DISTURBANCE IN ATTENTION [None]
  - EUPHORIC MOOD [None]
  - FEELING ABNORMAL [None]
  - LETHARGY [None]
